FAERS Safety Report 25149826 (Version 1)
Quarter: 2025Q2

REPORT INFORMATION
  Report Type: Report from Study
  Country: US (occurrence: US)
  Receive Date: 20250402
  Receipt Date: 20250402
  Transmission Date: 20250717
  Serious: Yes (Other)
  Sender: GILEAD
  Company Number: US-GILEAD-2025-0709108

PATIENT
  Age: 3 Year
  Sex: Female

DRUGS (4)
  1. REMDESIVIR [Suspect]
     Active Substance: REMDESIVIR
     Indication: COVID-19
     Route: 065
     Dates: start: 202005
  2. PHENOBARBITAL [Concomitant]
     Active Substance: PHENOBARBITAL
  3. CLOBAZAM [Concomitant]
     Active Substance: CLOBAZAM
  4. DIAZEPAM [Concomitant]
     Active Substance: DIAZEPAM

REACTIONS (1)
  - Hepatotoxicity [Recovered/Resolved]
